FAERS Safety Report 10629493 (Version 1)
Quarter: 2014Q4

REPORT INFORMATION
  Report Type: Spontaneous
  Country: US (occurrence: US)
  Receive Date: 20141205
  Receipt Date: 20141205
  Transmission Date: 20150529
  Serious: Yes (Other)
  Sender: FDA-Public Use
  Company Number: US-BEH-2014046936

PATIENT
  Age: 47 Year
  Sex: Female

DRUGS (1)
  1. HIZENTRA [Suspect]
     Active Substance: HUMAN IMMUNOGLOBULIN G
     Dates: start: 20140805

REACTIONS (9)
  - Pyrexia [Unknown]
  - Migraine [Unknown]
  - Diarrhoea [Unknown]
  - Intestinal obstruction [Unknown]
  - Nausea [Unknown]
  - Flank pain [Unknown]
  - Malaise [Unknown]
  - Abdominal pain upper [Unknown]
  - Urticaria [Unknown]

NARRATIVE: CASE EVENT DATE: 20140806
